FAERS Safety Report 12665192 (Version 3)
Quarter: 2016Q3

REPORT INFORMATION
  Report Type: Report from Study
  Country: US (occurrence: US)
  Receive Date: 20160818
  Receipt Date: 20160913
  Transmission Date: 20161109
  Serious: Yes (Other)
  Sender: FDA-Public Use
  Company Number: US-MYLANLABS-2016M1034720

PATIENT

DRUGS (36)
  1. CLOZAPINE TABLETS, USP [Suspect]
     Active Substance: CLOZAPINE
     Indication: SCHIZOPHRENIA
     Dosage: 500 MG, QD
     Route: 048
     Dates: start: 20050816
  2. SENNA [Concomitant]
     Active Substance: SENNA LEAF\SENNOSIDES\SENNOSIDES A AND B
     Indication: PRODUCT USED FOR UNKNOWN INDICATION
     Dosage: 2 DF, HS
  3. CORACE [Concomitant]
     Dosage: 100 MG, UNK
  4. MIRALAX [Concomitant]
     Active Substance: POLYETHYLENE GLYCOL 3350
     Indication: PRODUCT USED FOR UNKNOWN INDICATION
     Dosage: UNK, PRN
  5. SYSTANE BALANCE [Concomitant]
     Active Substance: PROPYLENE GLYCOL
     Indication: DRY EYE
     Dosage: 1 DROP IN THE RIGHT EYE AS NEEDED
  6. MILK OF MAGNESIA [Concomitant]
     Active Substance: MAGNESIUM HYDROXIDE
     Indication: CONSTIPATION
     Dosage: TAKE 2 TABLESPOONFUL (30ML) BY MOUTH EVERY 5 HR
     Route: 048
  7. FIBER [Concomitant]
     Active Substance: PSYLLIUM HUSK
     Indication: PRODUCT USED FOR UNKNOWN INDICATION
     Dosage: UNK, BID
  8. MAPAP [Concomitant]
     Active Substance: ACETAMINOPHEN
     Indication: HEADACHE
     Dosage: 650 MG, Q6H
     Route: 048
  9. TRAZODONE [Concomitant]
     Active Substance: TRAZODONE HYDROCHLORIDE
     Indication: PRODUCT USED FOR UNKNOWN INDICATION
     Dosage: 50 MG, HS (TAKE ONE TABLET BEFORE BED SUNDAY-THURSDAY NIGHTS DO NOT TAKE ON FRIDAY OR SATURDAY)
     Route: 048
  10. OMEPRAZOLE. [Concomitant]
     Active Substance: OMEPRAZOLE
     Dosage: 40 MG, QD
     Route: 048
  11. SUNSCREEN [Concomitant]
     Active Substance: HOMOSALATE\OCTINOXATE\OCTISALATE\OXYBENZONE\TITANIUM DIOXIDE
     Indication: PRODUCT USED FOR UNKNOWN INDICATION
     Dosage: USE AS DIRECTED AS NEEDED ON SUNNY DAYS (FOR EXTERNAL USE ONLY)
  12. SUDOGEST [Concomitant]
     Active Substance: PSEUDOEPHEDRINE HYDROCHLORIDE
     Indication: PULMONARY CONGESTION
     Dosage: 1 DF, Q6H
     Route: 048
  13. CORACE [Concomitant]
     Dosage: 100 MG, UNK
  14. ZYPREXA [Concomitant]
     Active Substance: OLANZAPINE
     Dosage: 20 MG, PM
     Route: 048
  15. OLANZAPINE. [Concomitant]
     Active Substance: OLANZAPINE
     Indication: PRODUCT USED FOR UNKNOWN INDICATION
     Dosage: 5 MG, AM
     Route: 048
  16. BENZONATATE. [Concomitant]
     Active Substance: BENZONATATE
     Indication: COUGH
     Dosage: 100 MG, UNK
     Route: 048
  17. CICLOPIROX. [Concomitant]
     Active Substance: CICLOPIROX
     Indication: PRODUCT USED FOR UNKNOWN INDICATION
     Dosage: UNK, BID (APPLY TO BOTH FEET AND BETWEEN TOES TWICE A DAY FOR 21 DAYS)
  18. Q-TUSSIN [Concomitant]
     Active Substance: GUAIFENESIN
     Indication: COUGH
     Dosage: 1 DF, Q4H
     Route: 048
  19. MAPAP [Concomitant]
     Active Substance: ACETAMINOPHEN
     Indication: PAIN
  20. FLUOXETINE [Concomitant]
     Active Substance: FLUOXETINE HYDROCHLORIDE
     Indication: PRODUCT USED FOR UNKNOWN INDICATION
     Dosage: 20 MG, HS
     Route: 048
  21. DEPAKOTE [Concomitant]
     Active Substance: DIVALPROEX SODIUM
     Dosage: 250 MG, HS
     Route: 048
  22. OMEPRAZOLE. [Concomitant]
     Active Substance: OMEPRAZOLE
     Indication: PRODUCT USED FOR UNKNOWN INDICATION
     Dosage: 20 MG, HS
     Route: 048
  23. ZYPREXA [Concomitant]
     Active Substance: OLANZAPINE
     Dosage: 15 MG, HS
     Route: 048
  24. SYNTHROID [Concomitant]
     Active Substance: LEVOTHYROXINE SODIUM
     Indication: PRODUCT USED FOR UNKNOWN INDICATION
     Dosage: 50 MG, HS
  25. REGULOID SUGAR FREE [Concomitant]
     Indication: PRODUCT USED FOR UNKNOWN INDICATION
     Dosage: 2 TSP MIXED INTO 8 OZ WATER
  26. BISMATROL [Concomitant]
     Active Substance: BISMUTH SUBSALICYLATE
     Indication: ABDOMINAL DISCOMFORT
     Dosage: TAKE 1 TABLESPOONFUL BY MOUTH EVERY HOUR AS NEEDED
  27. BACITRACIN. [Concomitant]
     Active Substance: BACITRACIN
     Indication: SKIN ABRASION
  28. STOOL SOFTENER [Concomitant]
     Active Substance: DOCUSATE CALCIUM
     Indication: PRODUCT USED FOR UNKNOWN INDICATION
     Dosage: 100 MG, BID
     Route: 048
  29. POLYETHYLENE GLYCOL [Concomitant]
     Active Substance: POLYETHYLENE GLYCOLS
     Indication: PRODUCT USED FOR UNKNOWN INDICATION
     Dosage: 17 G, UNK
  30. BISMATROL [Concomitant]
     Active Substance: BISMUTH SUBSALICYLATE
     Indication: VOMITING
  31. MAPAP [Concomitant]
     Active Substance: ACETAMINOPHEN
     Indication: BODY TEMPERATURE INCREASED
  32. DEPAKOTE [Concomitant]
     Active Substance: DIVALPROEX SODIUM
     Indication: PRODUCT USED FOR UNKNOWN INDICATION
     Dosage: 1250 MG, HS
     Route: 048
  33. DEPAKOTE [Concomitant]
     Active Substance: DIVALPROEX SODIUM
     Dosage: 500 MG, BID
     Route: 048
  34. CORACE [Concomitant]
     Indication: PRODUCT USED FOR UNKNOWN INDICATION
     Dosage: 100 MG, BID
  35. ZYPREXA [Concomitant]
     Active Substance: OLANZAPINE
     Indication: PRODUCT USED FOR UNKNOWN INDICATION
     Dosage: 10 MG, PM
     Route: 048
  36. BISMATROL [Concomitant]
     Active Substance: BISMUTH SUBSALICYLATE
     Indication: NAUSEA

REACTIONS (1)
  - Neutropenia [Recovered/Resolved]

NARRATIVE: CASE EVENT DATE: 20160813
